FAERS Safety Report 6749641-7 (Version None)
Quarter: 2010Q2

REPORT INFORMATION
  Report Type: 
  Country: None (occurrence: None)
  Receive Date: 20100601
  Receipt Date: 20100528
  Transmission Date: 20101027
  Serious: Yes (Other)
  Sender: FDA-Public Use
  Company Number: B0606944A

PATIENT
  Sex: Female
  Weight: 46 kg

DRUGS (5)
  1. LAMICTAL [Suspect]
     Indication: EPILEPSY
     Route: 048
  2. VIMPAT [Suspect]
     Indication: EPILEPSY
     Dosage: 10MG TWICE PER DAY
     Route: 048
     Dates: start: 20100414, end: 20100519
  3. URBANYL [Concomitant]
     Indication: EPILEPSY
     Dosage: 4MG TWICE PER DAY
     Route: 048
  4. TOPIRAMATE [Concomitant]
     Dosage: 50MG AS REQUIRED
  5. MAGNE B6 [Concomitant]

REACTIONS (6)
  - DRUG RESISTANCE [None]
  - ECCHYMOSIS [None]
  - EPILEPSY [None]
  - NAUSEA [None]
  - PRURITUS [None]
  - RASH [None]
